FAERS Safety Report 9368567 (Version 1)
Quarter: 2013Q2

REPORT INFORMATION
  Report Type: Spontaneous
  Country: US (occurrence: US)
  Receive Date: 20130626
  Receipt Date: 20130626
  Transmission Date: 20140414
  Serious: Yes (Other)
  Sender: FDA-Public Use
  Company Number: US-JNJCP-30000167880

PATIENT
  Sex: Male
  Weight: 102 kg

DRUGS (2)
  1. NEUTROGENA ULTRA SHEER DRY TOUCH SUNBLOCK SPF55 [Suspect]
     Indication: PROPHYLAXIS
     Dosage: APPLIED LIBERALLY ALL OVER FACE, NECK AND BEHIND EARS, ONCE
     Route: 061
     Dates: start: 20130616, end: 20130616
  2. ALLUPRINOL [Concomitant]
     Indication: GOUT
     Dosage: SINCE COUPLE OF YEARS

REACTIONS (7)
  - Swelling [Recovering/Resolving]
  - Application site swelling [Recovering/Resolving]
  - Application site pain [Recovering/Resolving]
  - Eye pain [Recovering/Resolving]
  - Expired drug administered [Unknown]
  - Accidental exposure to product [Recovering/Resolving]
  - Pharyngeal oedema [Recovering/Resolving]
